FAERS Safety Report 9110941 (Version 1)
Quarter: 2013Q1

REPORT INFORMATION
  Report Type: Spontaneous
  Country: US (occurrence: US)
  Receive Date: 20130219
  Receipt Date: 20130219
  Transmission Date: 20140127
  Serious: No
  Sender: FDA-Public Use
  Company Number: US-BRISTOL-MYERS SQUIBB COMPANY-17208679

PATIENT
  Age: 52 Year
  Sex: Female
  Weight: 63.49 kg

DRUGS (6)
  1. ABATACEPT SUBQ INJECTION 125MG/ML [Suspect]
     Dosage: 1 DF:125MG/ML
     Route: 058
  2. TOPAMAX [Concomitant]
     Dosage: TABS
  3. ESTRACE TABS 1 MG [Concomitant]
  4. ZOLOFT [Concomitant]
     Dosage: TABS
  5. NEXIUM [Concomitant]
     Dosage: CAPS
  6. PERCOCET [Concomitant]
     Dosage: STRENGHT:PERCOCET TABS 2.5/325 UNITS NOS?1 DF:2.5/325 UNITS NOS

REACTIONS (2)
  - Nausea [Unknown]
  - Headache [Unknown]
